FAERS Safety Report 5648297-4 (Version None)
Quarter: 2008Q1

REPORT INFORMATION
  Report Type: 
  Country: None (occurrence: None)
  Receive Date: 20080131
  Receipt Date: 20071203
  Transmission Date: 20080703
  Serious: No
  Sender: FDA-Public Use
  Company Number: US200712000688

PATIENT
  Age: 46 Year
  Sex: Female
  Weight: 89.9 kg

DRUGS (7)
  1. BYETTA [Suspect]
     Indication: TYPE 1 DIABETES MELLITUS
     Dosage: 5 UG, 2/D, SUBCUTANEOUS; 10 UG, 2/D, SUBCUTANEOUS; 20 UG, OTHER, SUBCUTANEOUS
     Route: 058
     Dates: start: 20070703, end: 20071001
  2. BYETTA [Suspect]
     Indication: TYPE 1 DIABETES MELLITUS
     Dosage: 5 UG, 2/D, SUBCUTANEOUS; 10 UG, 2/D, SUBCUTANEOUS; 20 UG, OTHER, SUBCUTANEOUS
     Route: 058
     Dates: start: 20071203, end: 20071203
  3. BYETTA [Suspect]
     Indication: TYPE 1 DIABETES MELLITUS
     Dosage: 5 UG, 2/D, SUBCUTANEOUS; 10 UG, 2/D, SUBCUTANEOUS; 20 UG, OTHER, SUBCUTANEOUS
     Route: 058
     Dates: start: 20071001
  4. LANTUS [Concomitant]
  5. DIOVAN [Concomitant]
  6. VYTORIN [Concomitant]
  7. AVANDIA [Concomitant]

REACTIONS (2)
  - INCORRECT DOSE ADMINISTERED [None]
  - WEIGHT DECREASED [None]
